FAERS Safety Report 6688027-0 (Version None)
Quarter: 2010Q2

REPORT INFORMATION
  Report Type: 
  Country: None (occurrence: None)
  Receive Date: 20100420
  Receipt Date: 20100408
  Transmission Date: 20101027
  Serious: Yes (Other)
  Sender: FDA-Public Use
  Company Number: PHHY2010US22166

PATIENT
  Sex: Female

DRUGS (6)
  1. DIOVAN [Suspect]
     Dosage: UNK
  2. VALTURNA [Suspect]
     Dosage: 300/320 MG
  3. METOPROLOL TARTRATE [Suspect]
  4. PLAVIX [Concomitant]
     Dosage: 75 MG
  5. ASPIRIN [Concomitant]
  6. FENOFIBRATE [Concomitant]

REACTIONS (5)
  - BLOOD PRESSURE FLUCTUATION [None]
  - DELAYED SLEEP PHASE [None]
  - GAIT DISTURBANCE [None]
  - HEART RATE IRREGULAR [None]
  - STENT PLACEMENT [None]
